FAERS Safety Report 4552734-6 (Version None)
Quarter: 2005Q1

REPORT INFORMATION
  Report Type: 
  Country: None (occurrence: None)
  Receive Date: 20050112
  Receipt Date: 20050112
  Transmission Date: 20050727
  Serious: Yes (Other)
  Sender: FDA-Public Use
  Company Number: None

PATIENT

DRUGS (1)
  1. LEVOTHYROXINE  MULTIPLE SANDOZ [Suspect]
     Indication: HYPOTHYROIDISM
     Dosage: MULTIPLE  DAILY ORAL
     Route: 048
     Dates: start: 20040901, end: 20050101

REACTIONS (7)
  - BLOOD THYROID STIMULATING HORMONE INCREASED [None]
  - DRUG EFFECT DECREASED [None]
  - FATIGUE [None]
  - MOOD SWINGS [None]
  - PHARMACEUTICAL PRODUCT COMPLAINT [None]
  - TEMPERATURE INTOLERANCE [None]
  - WEIGHT INCREASED [None]
